FAERS Safety Report 5188035-5 (Version None)
Quarter: 2006Q4

REPORT INFORMATION
  Report Type: 
  Country: None (occurrence: None)
  Receive Date: 20061214
  Receipt Date: 20061128
  Transmission Date: 20070319
  Serious: Yes (Hospitalization)
  Sender: FDA-Public Use
  Company Number: DSA_29049_2006

PATIENT
  Age: 23 Year
  Sex: Male

DRUGS (1)
  1. TAVOR                                                    /00273201/ [Suspect]
     Dosage: 120 MG ONCE PO
     Route: 048
     Dates: start: 20061128, end: 20061128

REACTIONS (2)
  - DRUG ABUSER [None]
  - TACHYCARDIA [None]
